FAERS Safety Report 16593850 (Version 6)
Quarter: 2021Q1

REPORT INFORMATION
  Report Type: Report from Study
  Country: GB (occurrence: GB)
  Receive Date: 20190718
  Receipt Date: 20210308
  Transmission Date: 20210419
  Serious: Yes (Hospitalization, Other)
  Sender: FDA-Public Use
  Company Number: GB-NAPPMUNDI-CAN-2019-0010210

PATIENT
  Age: 78 Year
  Sex: Female
  Weight: 51 kg

DRUGS (15)
  1. PENTHROX [Suspect]
     Active Substance: METHOXYFLURANE
     Indication: POST-TRAUMATIC PAIN
     Dosage: 1 VIAL (3 ML)
     Route: 055
     Dates: start: 20190202, end: 20190202
  2. MORPHINE SULFATE. [Suspect]
     Active Substance: MORPHINE SULFATE
     Indication: POST-TRAUMATIC PAIN
     Dosage: 5 MG, UNK
     Route: 042
     Dates: start: 20190202, end: 20190202
  3. PARACETAMOL [Suspect]
     Active Substance: ACETAMINOPHEN
     Indication: POST-TRAUMATIC PAIN
     Dosage: 1 G, UNK
     Route: 042
     Dates: start: 20190202, end: 20190202
  4. ONDANSETRON [Concomitant]
     Active Substance: ONDANSETRON
     Indication: NAUSEA
     Dosage: 4 MG AS NEEDED
     Route: 048
     Dates: start: 20190204
  5. GAVISCON [Concomitant]
     Active Substance: ALUMINUM HYDROXIDE\MAGNESIUM CARBONATE
     Indication: DYSPEPSIA
     Dosage: 10 ML FOUR TIMES DAILY
     Route: 048
     Dates: start: 20190211
  6. SODIUM CHLORIDE. [Concomitant]
     Active Substance: SODIUM CHLORIDE
     Indication: FLUID REPLACEMENT
     Dosage: 10 ML AS NEEDED
     Route: 042
     Dates: start: 20190202
  7. CYCLIZINE [Concomitant]
     Active Substance: CYCLIZINE
     Indication: ILLNESS
     Dosage: 50 MG AS NEEDED
     Route: 048
     Dates: start: 20190203
  8. OXYCODONE [Concomitant]
     Active Substance: OXYCODONE
     Indication: PAIN
     Dosage: 5 ML EVERY 4 HOURS AS NEEDED
     Route: 048
     Dates: start: 20190211, end: 20190212
  9. FORTISIP COMPACT [Concomitant]
     Active Substance: CARBOHYDRATES\FATTY ACIDS\MINERALS\PROTEIN\VITAMINS
     Indication: PRODUCT USED FOR UNKNOWN INDICATION
     Dosage: 125 ML TWICE DAILY
     Route: 048
     Dates: start: 20190202, end: 20190226
  10. MORPHINE SULFATE (SIMILAR TO NDA 19?516) [Suspect]
     Active Substance: MORPHINE SULFATE
     Indication: POST-TRAUMATIC PAIN
     Dosage: 5 MG, UNK
     Route: 042
     Dates: start: 20190202, end: 20190202
  11. OCTENISAN ANTIMICROBIAL [Concomitant]
     Indication: ANTIBIOTIC PROPHYLAXIS
     Dosage: 1 APPLICATION IN THE MORNING
     Route: 003
     Dates: start: 20190203
  12. PHOSPHATE ENEMA [Concomitant]
     Active Substance: SODIUM PHOSPHATE, DIBASIC\SODIUM PHOSPHATE, MONOBASIC
     Indication: CONSTIPATION
     Dosage: 1 ENEMA AS NEEDED
     Route: 054
     Dates: start: 20190207
  13. ENOXAPARIN [Concomitant]
     Active Substance: ENOXAPARIN
     Indication: COAGULOPATHY
     Dosage: 40 MG ONCE DAILY
     Route: 058
     Dates: start: 20190203
  14. PARACETAMOL [Concomitant]
     Active Substance: ACETAMINOPHEN
     Indication: PAIN
     Dosage: 500 MG FOUR TIMES DAILY
     Route: 048
     Dates: start: 20190203
  15. OROMORPH [Concomitant]
     Indication: PAIN
     Dosage: 5 MG TWICE DAILY
     Route: 048
     Dates: start: 20190207, end: 20190211

REACTIONS (3)
  - Liver function test abnormal [Recovered/Resolved]
  - Pneumonia [Unknown]
  - Liver disorder [Not Recovered/Not Resolved]

NARRATIVE: CASE EVENT DATE: 20190219
